FAERS Safety Report 6551735-6 (Version None)
Quarter: 2010Q1

REPORT INFORMATION
  Report Type: 
  Country: None (occurrence: None)
  Receive Date: 20100126
  Receipt Date: 20100115
  Transmission Date: 20100710
  Serious: Yes (Death)
  Sender: FDA-Public Use
  Company Number: CN-JNJFOC-20100105203

PATIENT
  Sex: Male

DRUGS (3)
  1. TYLENOL [Suspect]
     Indication: NASOPHARYNGITIS
  2. PANADOL [Suspect]
     Indication: PAIN
  3. PANADOL [Suspect]
     Indication: PYREXIA

REACTIONS (10)
  - CARDIAC FAILURE [None]
  - CIRCULATORY COLLAPSE [None]
  - CONGESTIVE CARDIOMYOPATHY [None]
  - DRUG ADMINISTRATION ERROR [None]
  - HEPATIC CONGESTION [None]
  - PULMONARY CONGESTION [None]
  - PULMONARY OEDEMA [None]
  - RESPIRATORY ARREST [None]
  - RESPIRATORY FAILURE [None]
  - UNRESPONSIVE TO STIMULI [None]
